FAERS Safety Report 6145426-3 (Version None)
Quarter: 2009Q2

REPORT INFORMATION
  Report Type: 
  Country: None (occurrence: None)
  Receive Date: 20090402
  Receipt Date: 20090318
  Transmission Date: 20091009
  Serious: Yes (Hospitalization)
  Sender: FDA-Public Use
  Company Number: 2009S1001305

PATIENT
  Age: 16 Month
  Sex: Female
  Weight: 6.69 kg

DRUGS (10)
  1. LESTAURTINIB [Suspect]
     Indication: ACUTE LYMPHOCYTIC LEUKAEMIA
     Dosage: ORAL
     Route: 048
     Dates: start: 20081231, end: 20090104
  2. MERCAPTOPURINE [Suspect]
  3. METHOTREXATE [Suspect]
  4. VINCRISTINE SULFATE [Suspect]
  5. CYTARABINE [Concomitant]
  6. HYDROCORTISONE [Concomitant]
  7. CAPTOPRIL [Concomitant]
  8. ETOPOSIDE [Concomitant]
  9. CYCLOPHOSPHAMIDE [Concomitant]
  10. MESNA [Concomitant]

REACTIONS (9)
  - CARDIAC FAILURE CONGESTIVE [None]
  - COLITIS [None]
  - GASTROENTERITIS NOROVIRUS [None]
  - HYPERTENSION [None]
  - LEFT VENTRICULAR DYSFUNCTION [None]
  - METAPNEUMOVIRUS INFECTION [None]
  - NOSOCOMIAL INFECTION [None]
  - PNEUMATOSIS [None]
  - PNEUMONIA [None]
